FAERS Safety Report 9057614 (Version 2)
Quarter: 2013Q1

REPORT INFORMATION
  Report Type: Report from Study
  Country: JP (occurrence: JP)
  Receive Date: 20130204
  Receipt Date: 20130207
  Transmission Date: 20140127
  Serious: Yes (Death, Life-Threatening)
  Sender: FDA-Public Use
  Company Number: JP-PFIZER INC-2013035625

PATIENT
  Sex: Male

DRUGS (11)
  1. AZITHROMYCIN [Suspect]
     Indication: PNEUMONIA
     Dosage: 500 MG, 1X/DAY (1.0MG/ML FOR 2 HOURS)
     Route: 042
     Dates: start: 20121208, end: 20121210
  2. FINIBAX [Suspect]
     Indication: PNEUMONIA
     Dosage: 500 MG, 1X/DAY
     Route: 042
     Dates: start: 20121208, end: 20121209
  3. FINIBAX [Suspect]
     Dosage: 250 MG, 2X/DAY
     Route: 042
     Dates: start: 20121210, end: 20121210
  4. OLIVES [Concomitant]
     Dosage: 4 ML/KG
     Route: 042
     Dates: start: 20121209, end: 20121211
  5. ELASPOL [Concomitant]
     Dosage: 200 MG DAILY
     Route: 042
     Dates: start: 20121209, end: 20121211
  6. PROPOFOL [Concomitant]
     Indication: SEDATION
     Dosage: 0.5 ML/KG
     Route: 042
     Dates: start: 20121209, end: 20121210
  7. INOVAN [Concomitant]
     Dosage: 10 G DAILY
     Route: 042
     Dates: start: 20121209, end: 20121211
  8. SOLDEM 3A [Concomitant]
     Indication: FLUID REPLACEMENT
     Dosage: 500 ML, 1X/DAY
     Route: 042
     Dates: start: 20121208, end: 20121210
  9. SOLDEM 3A [Concomitant]
     Indication: NUTRITIONAL SUPPLEMENTATION
  10. BFLUID [Concomitant]
     Indication: FLUID REPLACEMENT
     Dosage: 500 ML, 1X/DAY
     Route: 042
     Dates: start: 20121208, end: 20121210
  11. BFLUID [Concomitant]
     Indication: NUTRITIONAL SUPPLEMENTATION

REACTIONS (2)
  - Renal impairment [Fatal]
  - Pneumonia [Fatal]
